FAERS Safety Report 24752217 (Version 1)
Quarter: 2024Q4

REPORT INFORMATION
  Report Type: Report from Study
  Country: US (occurrence: US)
  Receive Date: 20241219
  Receipt Date: 20241219
  Transmission Date: 20250115
  Serious: Yes (Other)
  Sender: JOHNSON AND JOHNSON
  Company Number: US-JNJFOC-20241232948

PATIENT
  Age: 61 Year
  Sex: Female

DRUGS (4)
  1. SPRAVATO [Suspect]
     Active Substance: ESKETAMINE
     Indication: Depression
     Dosage: ^56 MG, 2 TOTAL DOSES^?LAST DOSE WITH RESPECT TO 56 MG WAS TAKEN ON 19-JUL-2024.
     Route: 045
     Dates: start: 20240717
  2. SPRAVATO [Suspect]
     Active Substance: ESKETAMINE
     Dosage: ^TOTAL OF 22 DOSES^
     Route: 045
     Dates: start: 20240724, end: 20241108
  3. CHOLECALCIFEROL [Concomitant]
     Active Substance: CHOLECALCIFEROL
  4. VITAMIN K [Concomitant]
     Active Substance: PHYTONADIONE

REACTIONS (3)
  - Syncope [Unknown]
  - Atrial fibrillation [Unknown]
  - Malaise [Unknown]

NARRATIVE: CASE EVENT DATE: 20240101
